FAERS Safety Report 5525377-5 (Version None)
Quarter: 2007Q4

REPORT INFORMATION
  Report Type: 
  Country: None (occurrence: None)
  Receive Date: 20071120
  Receipt Date: 20071120
  Transmission Date: 20080405
  Serious: Yes (Hospitalization)
  Sender: FDA-Public Use
  Company Number: None

PATIENT
  Age: 74 Year
  Sex: Female

DRUGS (7)
  1. AMOXICILLIN + CLAVULANATE POTASSIUM [Suspect]
     Indication: SINUSITIS
     Dosage: 1 TAB Q8H PO
     Route: 048
     Dates: start: 20070908, end: 20070919
  2. AMOXICILLIN + CLAVULANATE POTASSIUM [Suspect]
     Indication: URINARY TRACT INFECTION
     Dosage: 1 TAB Q8H PO
     Route: 048
     Dates: start: 20070908, end: 20070919
  3. PREDNISONE TAB [Concomitant]
  4. CALCIUM/VITAMIN D [Concomitant]
  5. ASPIRIN [Concomitant]
  6. MAXZIDE [Concomitant]
  7. PYRIDOSTIGMINE BROMIDE [Concomitant]

REACTIONS (2)
  - ANGIOEDEMA [None]
  - NO THERAPEUTIC RESPONSE [None]
